FAERS Safety Report 7991754-6 (Version None)
Quarter: 2011Q4

REPORT INFORMATION
  Report Type: 
  Country: None (occurrence: None)
  Receive Date: 20111219
  Receipt Date: 20111205
  Transmission Date: 20120403
  Serious: Yes (Death)
  Sender: FDA-Public Use
  Company Number: PHHY2011US109177

PATIENT
  Age: 37 Year
  Sex: Female

DRUGS (14)
  1. LEVOTHYROXINE SODIUM [Suspect]
  2. ARIPIPRAZOLE [Suspect]
  3. BUPROPION HCL [Suspect]
  4. TOPIRAMATE [Suspect]
  5. SIMVASTATIN [Suspect]
  6. RANITIDINE [Suspect]
  7. CLONAZEPAM [Suspect]
  8. GEMFIBROZIL [Suspect]
  9. OPIOIDS [Suspect]
     Route: 048
  10. ETHANOL [Suspect]
  11. PREDNISONE TAB [Suspect]
  12. DULOXETINE HYDROCHLORIDE [Suspect]
  13. OXCARBAZEPINE [Suspect]
     Route: 048
  14. METFORMIN HCL [Suspect]

REACTIONS (1)
  - COMPLETED SUICIDE [None]
